FAERS Safety Report 20720655 (Version 4)
Quarter: 2022Q3

REPORT INFORMATION
  Report Type: Spontaneous
  Country: JP (occurrence: JP)
  Receive Date: 20220418
  Receipt Date: 20220705
  Transmission Date: 20221027
  Serious: Yes (Other)
  Sender: FDA-Public Use
  Company Number: JP-BRISTOL-MYERS SQUIBB COMPANY-2022-020697

PATIENT
  Age: 81 Year
  Sex: Female
  Weight: 55.9 kg

DRUGS (11)
  1. ELIQUIS [Suspect]
     Active Substance: APIXABAN
     Indication: Pulmonary embolism
     Route: 048
     Dates: start: 20220331, end: 20220407
  2. ELIQUIS [Suspect]
     Active Substance: APIXABAN
     Route: 048
     Dates: start: 20220408, end: 20220408
  3. SPIRONOLACTONE [Suspect]
     Active Substance: SPIRONOLACTONE
     Indication: Cardiac failure chronic
     Route: 048
     Dates: start: 20220331, end: 20220406
  4. AZOSEMIDE [Suspect]
     Active Substance: AZOSEMIDE
     Indication: Cardiac failure chronic
     Route: 048
     Dates: start: 20220331, end: 20220406
  5. DIAZEPAM [Concomitant]
     Active Substance: DIAZEPAM
     Indication: Product used for unknown indication
     Dosage: 1 MG THRICE DAILY
     Route: 048
     Dates: start: 20220331, end: 20220405
  6. RISPERIDONE [Concomitant]
     Active Substance: RISPERIDONE
     Indication: Product used for unknown indication
     Dosage: 0.5 MG TWICE DAILY IN THE MORNING AND BEFORE BEDTIME;
     Route: 048
     Dates: start: 20220331
  7. VALSARTAN [Concomitant]
     Active Substance: VALSARTAN
     Indication: Hypertension
     Dosage: 80 MG ONCE DAILY IN THE MORNING
     Route: 048
     Dates: start: 20220331, end: 20220406
  8. AMLODIPINE MALEATE [Concomitant]
     Active Substance: AMLODIPINE MALEATE
     Indication: Hypertension
     Dosage: 2.5 MG TWICE DAILY IN THE MORNING AND EVENING
     Route: 048
     Dates: start: 20220331, end: 20220406
  9. MAGNESIUM OXIDE [Concomitant]
     Active Substance: MAGNESIUM OXIDE
     Indication: Constipation
     Dosage: 330 MG TWICE DAILY IN THE MORNING AND EVENING
     Route: 048
     Dates: start: 20220331
  10. MEMANTINE [Concomitant]
     Active Substance: MEMANTINE
     Indication: Dementia Alzheimer^s type
     Dosage: 20 MG DAILY IN THE EVENING
     Route: 048
     Dates: start: 20220331
  11. SENNOSIDES [Concomitant]
     Active Substance: SENNOSIDES
     Indication: Constipation
     Dosage: 24 MG AS NEEDED
     Route: 048
     Dates: start: 20220331

REACTIONS (1)
  - Renal impairment [Recovered/Resolved]

NARRATIVE: CASE EVENT DATE: 20220406
